FAERS Safety Report 5500953-4 (Version None)
Quarter: 2007Q4

REPORT INFORMATION
  Report Type: 
  Country: None (occurrence: None)
  Receive Date: 20071029
  Receipt Date: 20071018
  Transmission Date: 20080405
  Serious: Yes (Hospitalization)
  Sender: FDA-Public Use
  Company Number: PHBS2007JP17571

PATIENT
  Age: 50 Year
  Sex: Female

DRUGS (4)
  1. TEGRETOL [Suspect]
     Indication: PAIN
     Dosage: 400 MG/DAY
     Route: 048
     Dates: start: 20071002, end: 20071018
  2. FLUMARIN [Suspect]
     Route: 065
     Dates: start: 20071012, end: 20071015
  3. LOXONIN [Concomitant]
     Indication: PAIN
     Route: 048
  4. VOLTAREN [Concomitant]
     Indication: PAIN
     Route: 054

REACTIONS (4)
  - C-REACTIVE PROTEIN INCREASED [None]
  - PLATELET COUNT DECREASED [None]
  - PYREXIA [None]
  - URINARY TRACT INFECTION [None]
